FAERS Safety Report 5787689-X (Version None)
Quarter: 2008Q2

REPORT INFORMATION
  Report Type: 
  Country: None (occurrence: None)
  Receive Date: 20080625
  Receipt Date: 20071024
  Transmission Date: 20081010
  Serious: No
  Sender: FDA-Public Use
  Company Number: US-ASTRAZENECA-2007UW24702

PATIENT
  Age: 74 Year
  Sex: Male
  Weight: 77.1 kg

DRUGS (13)
  1. PULMICORT RESPULES [Suspect]
     Indication: CHRONIC OBSTRUCTIVE PULMONARY DISEASE
     Route: 055
  2. DUONEB [Concomitant]
  3. ALBUTEROL [Concomitant]
  4. ATROVENT [Concomitant]
  5. THEOPHYLLINE [Concomitant]
  6. LORAZEPAM [Concomitant]
  7. LISINOPRIL [Concomitant]
  8. LORATADINE [Concomitant]
  9. LOVASTATIN [Concomitant]
  10. TOPROL-XL [Concomitant]
  11. FORADIL [Concomitant]
  12. OXYGEN [Concomitant]
  13. MUCINEX [Concomitant]

REACTIONS (1)
  - DYSPNOEA [None]
